FAERS Safety Report 18930418 (Version 6)
Quarter: 2021Q1

REPORT INFORMATION
  Report Type: Report from Study
  Country: CA (occurrence: CA)
  Receive Date: 20210223
  Receipt Date: 20210317
  Transmission Date: 20210420
  Serious: Yes (Hospitalization, Other)
  Sender: FDA-Public Use
  Company Number: CA-HLS-202107077

PATIENT
  Age: 78 Year
  Sex: Female
  Weight: 55 kg

DRUGS (3)
  1. CLOPIXOL [Concomitant]
     Active Substance: ZUCLOPENTHIXOL
     Indication: SCHIZOPHRENIA
     Dosage: 75MG IM Q4WEEKS
     Route: 065
     Dates: start: 1995
  2. CLOZARIL [Suspect]
     Active Substance: CLOZAPINE
     Indication: SCHIZOPHRENIA
     Dosage: 50MG AT 12H00 + 180MG AT 17H00
     Route: 048
     Dates: start: 19910620
  3. CLOZARIL [Suspect]
     Active Substance: CLOZAPINE
     Indication: SCHIZOPHRENIA
     Dosage: 50MG AT LUNCH + 200 MG AT SUPPER
     Route: 065

REACTIONS (1)
  - COVID-19 [Recovered/Resolved]
